FAERS Safety Report 8680233 (Version 3)
Quarter: 2013Q2

REPORT INFORMATION
  Report Type: Spontaneous
  Country: US (occurrence: US)
  Receive Date: 20120724
  Receipt Date: 20130515
  Transmission Date: 20140414
  Serious: Yes (Other)
  Sender: FDA-Public Use
  Company Number: US-009507513-1207USA006113

PATIENT
  Age: 19 Year
  Sex: Female
  Weight: 70.75 kg

DRUGS (5)
  1. IMPLANON [Suspect]
     Dosage: UNK
     Route: 059
     Dates: start: 20090724
  2. PLAQUENIL [Concomitant]
  3. PROTONIX [Concomitant]
  4. EFFEXOR [Concomitant]
  5. ASPIRIN [Concomitant]

REACTIONS (2)
  - Systemic lupus erythematosus [Not Recovered/Not Resolved]
  - Medical device complication [Unknown]
